FAERS Safety Report 8495838-8 (Version None)
Quarter: 2012Q3

REPORT INFORMATION
  Report Type: 
  Country: None (occurrence: None)
  Receive Date: 20120709
  Receipt Date: 20120704
  Transmission Date: 20120928
  Serious: Yes (Death)
  Sender: FDA-Public Use
  Company Number: PHHY2012BR057894

PATIENT

DRUGS (4)
  1. IMATINIB MESYLATE [Suspect]
     Route: 048
  2. NILOTINIB [Suspect]
  3. HYDREA [Suspect]
  4. DASATINIB [Suspect]

REACTIONS (1)
  - DEATH [None]
